FAERS Safety Report 13101861 (Version 1)
Quarter: 2017Q1

REPORT INFORMATION
  Report Type: Spontaneous
  Country: US (occurrence: US)
  Receive Date: 20170110
  Receipt Date: 20170110
  Transmission Date: 20170428
  Serious: Yes (Other)
  Sender: FDA-Public Use
  Company Number: None

PATIENT
  Age: 78 Year
  Sex: Female
  Weight: 45.4 kg

DRUGS (1)
  1. LACTULOSE. [Suspect]
     Active Substance: LACTULOSE
     Indication: CONSTIPATION
     Route: 048
     Dates: start: 20161124, end: 20161220

REACTIONS (4)
  - Drug dose omission [None]
  - Sensory disturbance [None]
  - Burning sensation [None]
  - Constipation [None]

NARRATIVE: CASE EVENT DATE: 20161221
